FAERS Safety Report 4701099-5 (Version None)
Quarter: 2005Q2

REPORT INFORMATION
  Report Type: 
  Country: None (occurrence: None)
  Receive Date: 20050628
  Receipt Date: 20050602
  Transmission Date: 20051028
  Serious: Yes (Death, Life-Threatening, Hospitalization, Other)
  Sender: FDA-Public Use
  Company Number: JP-BRISTOL-MYERS SQUIBB COMPANY-12997144

PATIENT
  Age: 54 Year
  Sex: Female

DRUGS (9)
  1. ENDOXAN [Suspect]
     Indication: BREAST CANCER
     Route: 048
     Dates: start: 20050517, end: 20050517
  2. ADRIACIN [Suspect]
     Indication: BREAST CANCER
     Route: 042
     Dates: start: 20050517, end: 20050517
  3. EPIRUBICIN [Suspect]
     Indication: BREAST CANCER
     Route: 042
     Dates: start: 20041111, end: 20041111
  4. FLUOROURACIL [Suspect]
     Indication: BREAST CANCER
     Route: 042
     Dates: start: 20041111, end: 20041111
  5. CAPECITABINE [Suspect]
     Route: 048
     Dates: start: 20050315, end: 20050426
  6. MEDICON [Concomitant]
     Dates: start: 20050322
  7. LOXONIN [Concomitant]
     Dates: start: 20050322
  8. SELBEX [Concomitant]
     Dates: start: 20050322
  9. MYSLEE [Concomitant]
     Dates: start: 20050517

REACTIONS (2)
  - CARDIAC TAMPONADE [None]
  - HEPATITIS [None]
